FAERS Safety Report 21756949 (Version 1)
Quarter: 2022Q4

REPORT INFORMATION
  Report Type: Spontaneous
  Country: DK (occurrence: None)
  Receive Date: 20221220
  Receipt Date: 20221220
  Transmission Date: 20230112
  Serious: Yes (Life-Threatening)
  Sender: FDA-Public Use
  Company Number: 2022A408678

PATIENT
  Age: 81 Year
  Sex: Female
  Weight: 100 kg

DRUGS (1)
  1. DAPAGLIFLOZIN [Suspect]
     Active Substance: DAPAGLIFLOZIN
     Indication: Type 2 diabetes mellitus
     Route: 048
     Dates: start: 20221104, end: 20221208

REACTIONS (2)
  - Fournier^s gangrene [Unknown]
  - Infection [Unknown]

NARRATIVE: CASE EVENT DATE: 20220101
